FAERS Safety Report 13018182 (Version 4)
Quarter: 2017Q1

REPORT INFORMATION
  Report Type: Report from Study
  Country: JP (occurrence: JP)
  Receive Date: 20161212
  Receipt Date: 20170322
  Transmission Date: 20170428
  Serious: Yes (Hospitalization, Other)
  Sender: FDA-Public Use
  Company Number: JP-EISAI MEDICAL RESEARCH-EC-2016-021383

PATIENT
  Age: 78 Year
  Sex: Female
  Weight: 54 kg

DRUGS (10)
  1. LENVIMA [Suspect]
     Active Substance: LENVATINIB
     Indication: THYROID CANCER
     Route: 048
     Dates: start: 20160921, end: 20161010
  2. MIYA-BM [Concomitant]
     Active Substance: CLOSTRIDIUM BUTYRICUM SPORES STRAIN M-55
  3. LENVIMA [Suspect]
     Active Substance: LENVATINIB
     Route: 048
     Dates: start: 20161124, end: 20161202
  4. MAGNESIUM OXIDE. [Concomitant]
     Active Substance: MAGNESIUM OXIDE
  5. TAKEPRON [Concomitant]
     Active Substance: LANSOPRAZOLE
  6. CONIEL [Concomitant]
     Active Substance: BENIDIPINE HYDROCHLORIDE
  7. AMBROXOL HYDROCHLORIDE [Concomitant]
     Active Substance: AMBROXOL HYDROCHLORIDE
  8. THYRADIN S [Concomitant]
     Active Substance: LEVOTHYROXINE SODIUM
  9. PANTOSIN [Concomitant]
     Active Substance: PANTETHINE
  10. LENDORMIN [Concomitant]
     Active Substance: BROTIZOLAM

REACTIONS (1)
  - Cholecystitis [Recovered/Resolved]

NARRATIVE: CASE EVENT DATE: 20161202
